FAERS Safety Report 23699036 (Version 3)
Quarter: 2025Q1

REPORT INFORMATION
  Report Type: Spontaneous
  Country: US (occurrence: US)
  Receive Date: 20240402
  Receipt Date: 20250211
  Transmission Date: 20250409
  Serious: No
  Sender: PFIZER
  Company Number: US-PFIZER INC-202400075337

PATIENT
  Age: 62 Year
  Sex: Male

DRUGS (6)
  1. METHOTREXATE SODIUM [Suspect]
     Active Substance: METHOTREXATE SODIUM
     Indication: Psoriatic arthropathy
     Route: 065
  2. GOLD [Suspect]
     Active Substance: GOLD
     Indication: Psoriatic arthropathy
     Route: 065
  3. PREDNISONE [Concomitant]
     Active Substance: PREDNISONE
     Dosage: UNK, 1X/DAY
  4. TALTZ [Concomitant]
     Active Substance: IXEKIZUMAB
     Route: 065
  5. ENBREL [Concomitant]
     Active Substance: ETANERCEPT
     Indication: Psoriatic arthropathy
     Dosage: 50 MG, 2X/WEEK
     Route: 065
  6. ENBREL [Concomitant]
     Active Substance: ETANERCEPT
     Dosage: 50 MG, WEEKLY
     Route: 065
     Dates: start: 202403, end: 202405

REACTIONS (1)
  - Drug ineffective [Unknown]
